FAERS Safety Report 11771900 (Version 3)
Quarter: 2016Q2

REPORT INFORMATION
  Report Type: Report from Study
  Country: JP (occurrence: JP)
  Receive Date: 20151124
  Receipt Date: 20160418
  Transmission Date: 20160815
  Serious: Yes (Other)
  Sender: FDA-Public Use
  Company Number: JP-AMGEN-JPNCT2015124741

PATIENT
  Age: 72 Year
  Sex: Female
  Weight: 49 kg

DRUGS (12)
  1. CINACALCET HCL [Suspect]
     Active Substance: CINACALCET HYDROCHLORIDE
     Dosage: 25 MG, BID
     Route: 048
     Dates: start: 20150624, end: 20150708
  2. MOSAPRIDE CITRATE [Concomitant]
     Active Substance: MOSAPRIDE CITRATE
     Indication: HYPERPARATHYROIDISM PRIMARY
     Dosage: 15 MG, UNK
     Route: 048
     Dates: start: 20150722, end: 20150806
  3. MIYA-BM [Concomitant]
     Active Substance: CLOSTRIDIUM BUTYRICUM SPORES STRAIN M-55
     Indication: PSEUDOMEMBRANOUS COLITIS
     Dosage: 6 DF, UNK
     Route: 048
     Dates: start: 20150624, end: 20150806
  4. NEXIUM [Concomitant]
     Active Substance: ESOMEPRAZOLE MAGNESIUM
     Indication: GASTROOESOPHAGEAL REFLUX DISEASE
     Dosage: 10 MG, UNK
     Route: 048
     Dates: start: 20150702, end: 20150806
  5. SOLDEM 3A [Suspect]
     Active Substance: CARBOHYDRATES\POTASSIUM CHLORIDE\SODIUM CHLORIDE\SODIUM LACTATE
     Indication: PRODUCT USED FOR UNKNOWN INDICATION
     Dosage: 500 ML, UNK
     Route: 042
     Dates: start: 20150618, end: 20150803
  6. YOKUKANSAN [Concomitant]
     Active Substance: HERBALS
     Indication: SCHIZOPHRENIA
     Dosage: 2.5 G, UNK
     Route: 048
     Dates: end: 20150806
  7. CINACALCET HCL [Suspect]
     Active Substance: CINACALCET HYDROCHLORIDE
     Indication: HYPERPARATHYROIDISM PRIMARY
     Dosage: 25 MG, QD
     Route: 048
     Dates: start: 20150610, end: 20150623
  8. CINACALCET HCL [Suspect]
     Active Substance: CINACALCET HYDROCHLORIDE
     Dosage: 50 MG, BID
     Route: 048
     Dates: start: 20150709, end: 20150730
  9. LANSOPRAZOLE. [Concomitant]
     Active Substance: LANSOPRAZOLE
     Indication: GASTROOESOPHAGEAL REFLUX DISEASE
     Dosage: 30 MG, UNK
     Route: 048
     Dates: end: 20150701
  10. SEROQUEL [Concomitant]
     Active Substance: QUETIAPINE FUMARATE
     Indication: SCHIZOPHRENIA
     Dosage: 125 MG, UNK
     Route: 048
     Dates: end: 20150806
  11. VANCOMYCIN HYDROCHLORIDE. [Concomitant]
     Active Substance: VANCOMYCIN HYDROCHLORIDE
     Indication: PSEUDOMEMBRANOUS COLITIS
     Dosage: 0.5 G, UNK
     Route: 048
     Dates: start: 20150618, end: 20150702
  12. NAUZELIN [Concomitant]
     Active Substance: DOMPERIDONE
     Indication: HYPERPARATHYROIDISM PRIMARY
     Dosage: 30 MG, UNK
     Route: 048
     Dates: start: 20150702, end: 20150729

REACTIONS (3)
  - Cardiac failure [Recovering/Resolving]
  - Vomiting [Recovering/Resolving]
  - Nausea [Unknown]

NARRATIVE: CASE EVENT DATE: 20150701
